FAERS Safety Report 9603373 (Version 2)
Quarter: 2013Q4

REPORT INFORMATION
  Report Type: Spontaneous
  Country: US (occurrence: US)
  Receive Date: 20131007
  Receipt Date: 20131007
  Transmission Date: 20140711
  Serious: Yes (Other)
  Sender: FDA-Public Use
  Company Number: US-BANPHARM-20131735

PATIENT
  Age: 73 Year
  Sex: Female
  Weight: 49.9 kg

DRUGS (4)
  1. ALEVE LIQUID GELS 220 MG [Suspect]
     Dosage: 1 DF, ONCE,
     Route: 048
     Dates: start: 201309, end: 201309
  2. LOW DOSE BAYER ASPIRIN 81 [Concomitant]
  3. LEVOTHYROXINE [Concomitant]
  4. CRESTOR [Concomitant]

REACTIONS (3)
  - Choking [Recovered/Resolved]
  - Foreign body [Recovered/Resolved]
  - Vomiting [Recovered/Resolved]
